FAERS Safety Report 15428693 (Version 1)
Quarter: 2018Q3

REPORT INFORMATION
  Report Type: Spontaneous
  Country: US (occurrence: US)
  Receive Date: 20180921
  Receipt Date: 20180921
  Transmission Date: 20181010
  Serious: Yes (Life-Threatening, Disabling)
  Sender: FDA-Public Use
  Company Number: None

PATIENT
  Age: 76 Year
  Weight: 70.65 kg

DRUGS (10)
  1. THYROID, UNSPECIFIED (COMPOUNDED) [Suspect]
     Active Substance: THYROID, UNSPECIFIED
     Indication: HYPOTHYROIDISM
     Dosage: ?          QUANTITY:1 CAPSULE(S);?
     Route: 048
     Dates: start: 20170731, end: 20180914
  2. METHYLCOBALAMIN B12 [Concomitant]
  3. MESOGLYCAN [Concomitant]
  4. BERBERINE [Concomitant]
     Active Substance: BERBERINE
  5. PHYSICIANS ELEMENTAL DIET [Concomitant]
  6. VITAMIN D3 [Concomitant]
     Active Substance: CHOLECALCIFEROL
  7. VITAMIN E [Concomitant]
     Active Substance: .ALPHA.-TOCOPHEROL
  8. CURCUMIN [Concomitant]
     Active Substance: CURCUMIN
  9. UBIQUINOL [Concomitant]
     Active Substance: UBIQUINOL
  10. SIBOTIC [Concomitant]

REACTIONS (4)
  - Gastrointestinal bacterial infection [None]
  - Diarrhoea [None]
  - Product contamination microbial [None]
  - Product use issue [None]

NARRATIVE: CASE EVENT DATE: 20180501
